FAERS Safety Report 16142567 (Version 1)
Quarter: 2019Q2

REPORT INFORMATION
  Report Type: Spontaneous
  Country: FR (occurrence: FR)
  Receive Date: 20190401
  Receipt Date: 20190401
  Transmission Date: 20190711
  Serious: Yes (Other)
  Sender: FDA-Public Use
  Company Number: FR-PFIZER INC-2019134518

PATIENT
  Age: 35 Year
  Sex: Male

DRUGS (3)
  1. NEBCINE [Concomitant]
     Active Substance: TOBRAMYCIN
     Indication: PSEUDOMONAS INFECTION
     Dosage: 525 MG, 1X/DAY
     Route: 042
     Dates: start: 20180118, end: 20180118
  2. MERONEM [Suspect]
     Active Substance: MEROPENEM
     Indication: PSEUDOMONAS INFECTION
     Dosage: 68 G, (PROTOCOLE, EVERY 4 MONTHS)
     Route: 042
     Dates: start: 2007, end: 20180118
  3. CIPROFLOXACINE [CIPROFLOXACIN] [Suspect]
     Active Substance: CIPROFLOXACIN
     Indication: PSEUDOMONAS INFECTION
     Dosage: 750 MG, SINGLE
     Route: 048
     Dates: start: 20180118, end: 20180118

REACTIONS (1)
  - Fixed eruption [Recovered/Resolved]

NARRATIVE: CASE EVENT DATE: 20180119
